FAERS Safety Report 9562523 (Version 1)
Quarter: 2013Q3

REPORT INFORMATION
  Report Type: Spontaneous
  Country: US (occurrence: None)
  Receive Date: 20130926
  Receipt Date: 20130926
  Transmission Date: 20140515
  Serious: Yes (Life-Threatening, Hospitalization, Other)
  Sender: FDA-Public Use
  Company Number: None

PATIENT
  Age: 63 Year
  Sex: Female
  Weight: 81.65 kg

DRUGS (4)
  1. CYMBALTA [Suspect]
     Indication: DEPRESSION
     Route: 048
     Dates: start: 2007, end: 2012
  2. CYMBALTA [Suspect]
     Indication: PAIN
     Route: 048
     Dates: start: 2007, end: 2012
  3. BUPROPION XL [Suspect]
     Indication: DEPRESSION
     Route: 048
     Dates: start: 2007, end: 2012
  4. LUNESTA [Concomitant]

REACTIONS (11)
  - Gastrointestinal pain [None]
  - Vomiting [None]
  - Urticaria [None]
  - Abdominal pain [None]
  - Skin exfoliation [None]
  - Rash [None]
  - Syncope [None]
  - Joint injury [None]
  - Joint injury [None]
  - Back injury [None]
  - Pruritus generalised [None]
